FAERS Safety Report 10110834 (Version 2)
Quarter: 2014Q2

REPORT INFORMATION
  Report Type: Report from Study
  Country: FR (occurrence: FR)
  Receive Date: 20140425
  Receipt Date: 20140513
  Transmission Date: 20141212
  Serious: Yes (Hospitalization)
  Sender: FDA-Public Use
  Company Number: FR-CELGENEUS-056-21880-14042555

PATIENT
  Age: 72 Year
  Sex: Male
  Weight: 50 kg

DRUGS (7)
  1. REVLIMID [Suspect]
     Indication: LYMPHOMA
     Dosage: 10 MILLIGRAM
     Route: 048
     Dates: start: 20130824
  2. RITUXIMAB [Suspect]
     Indication: LYMPHOMA
     Route: 065
     Dates: start: 20130823
  3. BENDAMUSTINE [Concomitant]
     Indication: LYMPHOMA
     Route: 065
  4. CYCLOPHOSPHAMIDE [Concomitant]
     Indication: LYMPHOMA
     Route: 065
  5. PREDNISOLONE [Concomitant]
     Indication: LYMPHOMA
     Route: 065
  6. VINCRISTINE [Concomitant]
     Indication: LYMPHOMA
     Route: 065
  7. DOXORUBICIN [Concomitant]
     Indication: LYMPHOMA
     Route: 065

REACTIONS (1)
  - Bronchial disorder [Recovered/Resolved]
